FAERS Safety Report 7430966-7 (Version None)
Quarter: 2011Q2

REPORT INFORMATION
  Report Type: 
  Country: None (occurrence: None)
  Receive Date: 20110421
  Receipt Date: 20110413
  Transmission Date: 20111010
  Serious: Yes (Other)
  Sender: FDA-Public Use
  Company Number: PHHY2011JP31202

PATIENT
  Age: 80 Year
  Sex: Female

DRUGS (4)
  1. RIFAMPICIN SANDOZ [Suspect]
     Indication: TUBERCULOSIS
     Dosage: 450 MG, DAILY
     Route: 048
     Dates: start: 20110303, end: 20110316
  2. ESANBUTOL [Concomitant]
     Indication: TUBERCULOSIS
     Dosage: UNK UKN, UNK
     Route: 048
     Dates: start: 20110303, end: 20110316
  3. ISONIAZID [Concomitant]
     Indication: TUBERCULOSIS
     Dosage: UNK UKN, UNK
     Route: 048
     Dates: start: 20110303, end: 20110316
  4. PYDOXAL [Concomitant]
     Dosage: UNK UKN, UNK
     Route: 048
     Dates: start: 20110303, end: 20110316

REACTIONS (3)
  - HEPATIC FUNCTION ABNORMAL [None]
  - HEPATIC ENCEPHALOPATHY [None]
  - BLOOD BILIRUBIN INCREASED [None]
